FAERS Safety Report 9921004 (Version 1)
Quarter: 2014Q1

REPORT INFORMATION
  Report Type: Spontaneous
  Country: US (occurrence: US)
  Receive Date: 20140225
  Receipt Date: 20140225
  Transmission Date: 20141002
  Serious: No
  Sender: FDA-Public Use
  Company Number: US-BIOGENIDEC-2014BI017816

PATIENT
  Age: 31 Year
  Sex: Male

DRUGS (2)
  1. AVONEX [Suspect]
     Indication: MULTIPLE SCLEROSIS
     Route: 030
     Dates: start: 20130607
  2. TYLENOL [Concomitant]
     Indication: PAIN
     Dates: start: 2013

REACTIONS (8)
  - Haematemesis [Recovered/Resolved]
  - Abdominal discomfort [Recovered/Resolved]
  - Joint dislocation [Unknown]
  - Crepitations [Unknown]
  - Myalgia [Unknown]
  - Feeling abnormal [Unknown]
  - Pain [Not Recovered/Not Resolved]
  - Bone pain [Not Recovered/Not Resolved]
